FAERS Safety Report 6245222-2 (Version None)
Quarter: 2009Q2

REPORT INFORMATION
  Report Type: 
  Country: None (occurrence: None)
  Receive Date: 20090619
  Receipt Date: 20090319
  Transmission Date: 20091009
  Serious: No
  Sender: FDA-Public Use
  Company Number: ALL1-2009-00758

PATIENT

DRUGS (2)
  1. VYVANSE [Suspect]
     Dosage: ORAL
     Route: 048
  2. CHANTIX [Suspect]

REACTIONS (3)
  - AGITATION [None]
  - DRUG INTERACTION [None]
  - IRRITABILITY [None]
